FAERS Safety Report 7589521-0 (Version None)
Quarter: 2011Q3

REPORT INFORMATION
  Report Type: 
  Country: None (occurrence: None)
  Receive Date: 20110705
  Receipt Date: 20110623
  Transmission Date: 20111222
  Serious: Yes (Other)
  Sender: FDA-Public Use
  Company Number: US-ROCHE-786047

PATIENT
  Sex: Female

DRUGS (11)
  1. AVASTIN [Suspect]
     Route: 042
     Dates: start: 20090901
  2. PACLITAXEL [Suspect]
     Indication: OVARIAN CANCER METASTATIC
     Route: 042
     Dates: start: 20090101
  3. CYCLOPHOSPHAMIDE [Concomitant]
     Indication: OVARIAN CANCER METASTATIC
     Dates: start: 20081201
  4. DEXAMETHASONE [Concomitant]
     Dosage: ASSOCITED WITH CHEMOTHERAPY
  5. PACLITAXEL [Suspect]
     Route: 042
     Dates: start: 20090901
  6. METOPROLOL TARTRATE [Concomitant]
     Dosage: 50 TWICE DAILY
  7. TRIAMCINOLONE [Concomitant]
     Dosage: THREE TIMES A DAY
  8. ASPIRIN [Concomitant]
  9. PROTONIX [Concomitant]
  10. AVASTIN [Suspect]
     Indication: OVARIAN CANCER METASTATIC
     Dosage: ON DAY 1 AND 15 OF CYCLE.
     Route: 042
     Dates: start: 20081201
  11. HYDROCHLOROTHIAZIDE [Concomitant]

REACTIONS (3)
  - OVARIAN CANCER [None]
  - FATIGUE [None]
  - NEUTROPENIA [None]
